FAERS Safety Report 12631173 (Version 2)
Quarter: 2016Q3

REPORT INFORMATION
  Report Type: Spontaneous
  Country: US (occurrence: US)
  Receive Date: 20160808
  Receipt Date: 20160808
  Transmission Date: 20161109
  Serious: No
  Sender: FDA-Public Use
  Company Number: US-BEH-2015052579

PATIENT
  Sex: Female
  Weight: 96 kg

DRUGS (37)
  1. EPIPEN [Concomitant]
     Active Substance: EPINEPHRINE
  2. OPANA [Concomitant]
     Active Substance: OXYMORPHONE HYDROCHLORIDE
  3. BENADRYL [Concomitant]
     Active Substance: DIPHENHYDRAMINE HYDROCHLORIDE
  4. NYSTATIN. [Concomitant]
     Active Substance: NYSTATIN
  5. PRILOSEC [Concomitant]
     Active Substance: OMEPRAZOLE MAGNESIUM
  6. LANTUS [Concomitant]
     Active Substance: INSULIN GLARGINE
  7. REMERON [Concomitant]
     Active Substance: MIRTAZAPINE
  8. HIZENTRA [Suspect]
     Active Substance: HUMAN IMMUNOGLOBULIN G
     Indication: TYPE 2 DIABETES MELLITUS
     Dosage: 10 GM 50 ML VIAL
     Route: 058
  9. HIZENTRA [Suspect]
     Active Substance: HUMAN IMMUNOGLOBULIN G
     Indication: TYPE 2 DIABETES MELLITUS
     Dosage: 10 GM 50 ML VIAL
     Route: 058
  10. FERROUS SULFATE. [Concomitant]
     Active Substance: FERROUS SULFATE
  11. SULFACETAMIDE. [Concomitant]
     Active Substance: SULFACETAMIDE
  12. TIZANIDINE. [Concomitant]
     Active Substance: TIZANIDINE
  13. FLOVENT [Concomitant]
     Active Substance: FLUTICASONE PROPIONATE
  14. PEPCID [Concomitant]
     Active Substance: FAMOTIDINE
  15. SPIRONOLACTONE. [Concomitant]
     Active Substance: SPIRONOLACTONE
  16. DOXYCYCLINE. [Concomitant]
     Active Substance: DOXYCYCLINE
  17. LASIX [Concomitant]
     Active Substance: FUROSEMIDE
  18. HIZENTRA [Suspect]
     Active Substance: HUMAN IMMUNOGLOBULIN G
     Indication: ESSENTIAL HYPERTENSION
     Dosage: 10 GM 50 ML VIAL
     Route: 058
  19. DIPHENHYDRAMINE. [Concomitant]
     Active Substance: DIPHENHYDRAMINE
  20. LMX [Concomitant]
     Active Substance: LIDOCAINE
  21. FIORICET [Concomitant]
     Active Substance: ACETAMINOPHEN\BUTALBITAL\CAFFEINE
  22. SINGULAIR [Concomitant]
     Active Substance: MONTELUKAST SODIUM
  23. PREVACID [Concomitant]
     Active Substance: LANSOPRAZOLE
  24. TOPAMAX [Concomitant]
     Active Substance: TOPIRAMATE
  25. OXYGEN. [Concomitant]
     Active Substance: OXYGEN
  26. XANAX [Concomitant]
     Active Substance: ALPRAZOLAM
  27. HYDROXYZINE HYDROCHLORIDE. [Concomitant]
     Active Substance: HYDROXYZINE HYDROCHLORIDE
  28. ZYRTEC [Concomitant]
     Active Substance: CETIRIZINE HYDROCHLORIDE
  29. METHADONE [Concomitant]
     Active Substance: METHADONE HYDROCHLORIDE
  30. CLARITIN [Concomitant]
     Active Substance: LORATADINE
  31. ACETAMINOPHEN. [Concomitant]
     Active Substance: ACETAMINOPHEN
  32. DIFLUCAN [Concomitant]
     Active Substance: FLUCONAZOLE
  33. CYMBALTA [Concomitant]
     Active Substance: DULOXETINE HYDROCHLORIDE
  34. GLIMEPIRIDE. [Concomitant]
     Active Substance: GLIMEPIRIDE
  35. KLONOPIN [Concomitant]
     Active Substance: CLONAZEPAM
  36. OXYCODONE [Concomitant]
     Active Substance: OXYCODONE
  37. TYLENOL [Concomitant]
     Active Substance: ACETAMINOPHEN

REACTIONS (1)
  - Fatigue [Unknown]
